FAERS Safety Report 7668893 (Version 13)
Quarter: 2012Q4

REPORT INFORMATION
  Report Type: 
  Country: US (occurrence: US)
  Receive Date: 20101115
  Receipt Date: 20121004
  Transmission Date: 20130627
  Serious: Yes (Hospitalization, Disabling, Other)
  Sender: FDA-Public Use
  Company Number: US-009507513-1011USA01582

PATIENT

DRUGS (9)
  1. FOSAMAX [Suspect]
     Indication: OSTEOPENIA
     Dosage: 10 mg, qd
     Route: 048
     Dates: start: 199707, end: 20011012
  2. FOSAMAX [Suspect]
     Indication: OSTEOPOROSIS
     Dosage: 70 mg, QW
     Route: 048
     Dates: start: 20011012, end: 201003
  3. FOSAMAX [Suspect]
     Dosage: 35 mg, qd
     Route: 048
     Dates: start: 20020425
  4. FOSAMAX [Suspect]
     Dosage: UNK UNK, qd
     Route: 048
     Dates: start: 20030312
  5. THERAPY UNSPECIFIED [Concomitant]
     Indication: BLOOD CHOLESTEROL INCREASED
     Dates: start: 1990
  6. FOSAMAX [Suspect]
     Indication: OSTEOPENIA
     Route: 048
     Dates: start: 20090106
  7. FOSAMAX [Suspect]
     Indication: OSTEOPOROSIS
  8. CRESTOR [Concomitant]
  9. PLAVIX [Concomitant]

REACTIONS (76)
  - Femur fracture [Unknown]
  - Rotator cuff syndrome [Unknown]
  - Cerebrovascular accident [Unknown]
  - Spinal column stenosis [Unknown]
  - Gallbladder disorder [Unknown]
  - Cerebrovascular accident [Unknown]
  - Deafness neurosensory [Not Recovered/Not Resolved]
  - Anaemia postoperative [Unknown]
  - Osteoporosis [Unknown]
  - Stress fracture [Unknown]
  - Chest pain [Unknown]
  - Low turnover osteopathy [Unknown]
  - Bursitis [Not Recovered/Not Resolved]
  - Dyslipidaemia [Not Recovered/Not Resolved]
  - Femur fracture [Not Recovered/Not Resolved]
  - Fracture nonunion [Unknown]
  - Neuritis [Unknown]
  - Rotator cuff syndrome [Unknown]
  - Bone cyst [Unknown]
  - Skin lesion [Unknown]
  - Tachycardia [Unknown]
  - Hair texture abnormal [Unknown]
  - Fatigue [Not Recovered/Not Resolved]
  - Skin disorder [Not Recovered/Not Resolved]
  - Sleep disorder [Not Recovered/Not Resolved]
  - Dry mouth [Recovered/Resolved]
  - Anxiety [Unknown]
  - Vaginal discharge [Not Recovered/Not Resolved]
  - Diverticulitis [Not Recovered/Not Resolved]
  - Cholecystitis [Unknown]
  - Cholelithiasis [Unknown]
  - Tendon rupture [Unknown]
  - Hiatus hernia [Not Recovered/Not Resolved]
  - Cataract [Unknown]
  - Contusion [Unknown]
  - Colon adenoma [Unknown]
  - Kyphosis [Unknown]
  - Intervertebral disc degeneration [Not Recovered/Not Resolved]
  - Thyroid neoplasm [Not Recovered/Not Resolved]
  - Tendonitis [Unknown]
  - Dysuria [Unknown]
  - Leukocytosis [Unknown]
  - Tendon rupture [Unknown]
  - Enthesopathy [Not Recovered/Not Resolved]
  - Cardiovascular disorder [Not Recovered/Not Resolved]
  - Hand fracture [Recovering/Resolving]
  - Contusion [Unknown]
  - Contusion [Not Recovered/Not Resolved]
  - Radiculopathy [Not Recovered/Not Resolved]
  - Goitre [Not Recovered/Not Resolved]
  - Phlebitis [Unknown]
  - Haemorrhoids [Unknown]
  - Pneumonia [Unknown]
  - Restless legs syndrome [Not Recovered/Not Resolved]
  - Exostosis [Not Recovered/Not Resolved]
  - Arthropathy [Not Recovered/Not Resolved]
  - Asthenia [Unknown]
  - Fall [Unknown]
  - Haematoma [Unknown]
  - Excoriation [Unknown]
  - Sinus tachycardia [Unknown]
  - Drug administration error [Unknown]
  - Dehydration [Unknown]
  - Osteoarthritis [Unknown]
  - Muscle atrophy [Unknown]
  - Diverticulum [Unknown]
  - Adenomatous polyposis coli [Unknown]
  - Dizziness [Unknown]
  - Rash [Unknown]
  - Gastrooesophageal reflux disease [Not Recovered/Not Resolved]
  - Headache [Unknown]
  - Back pain [Not Recovered/Not Resolved]
  - Back pain [Unknown]
  - Arthralgia [Not Recovered/Not Resolved]
  - Abdominal discomfort [Unknown]
  - Neck pain [Unknown]
